FAERS Safety Report 9681129 (Version 2)
Quarter: 2013Q4

REPORT INFORMATION
  Report Type: Report from Study
  Country: US (occurrence: US)
  Receive Date: 20131111
  Receipt Date: 20131203
  Transmission Date: 20140711
  Serious: Yes (Hospitalization, Other)
  Sender: FDA-Public Use
  Company Number: US-PURDUE-USA-2013-0108314

PATIENT
  Sex: Female
  Weight: 65.31 kg

DRUGS (2)
  1. OXY CR TAB [Suspect]
     Indication: PAIN
     Dosage: UNK UNK, UNK
     Route: 048
     Dates: start: 2008
  2. OXY CR TAB [Suspect]
     Dosage: 20 MG, TID
     Route: 048
     Dates: start: 20130611, end: 20131020

REACTIONS (3)
  - Ovarian cyst [Recovered/Resolved]
  - Thrombosis [Unknown]
  - Deep vein thrombosis [Unknown]
